FAERS Safety Report 5298785-8 (Version None)
Quarter: 2007Q2

REPORT INFORMATION
  Report Type: 
  Country: None (occurrence: None)
  Receive Date: 20070410
  Receipt Date: 20070327
  Transmission Date: 20071010
  Serious: Yes (Hospitalization)
  Sender: FDA-Public Use
  Company Number: 2007BI001489

PATIENT
  Age: 26 Year
  Sex: Female

DRUGS (4)
  1. NATALIZUMAB [Suspect]
     Indication: MULTIPLE SCLEROSIS
     Dosage: 300 MG; QM; IV
     Route: 042
     Dates: start: 20061024, end: 20070116
  2. KEPPRA [Concomitant]
  3. FOLIC ACID [Concomitant]
  4. AMBIEN CR [Concomitant]

REACTIONS (15)
  - BALANCE DISORDER [None]
  - BLOOD GLUCOSE DECREASED [None]
  - CHEST PAIN [None]
  - CONFUSIONAL STATE [None]
  - CONVULSION [None]
  - DISORIENTATION [None]
  - HAEMATOCRIT DECREASED [None]
  - HEADACHE [None]
  - HYPERSENSITIVITY [None]
  - HYPOTENSION [None]
  - MENTAL STATUS CHANGES [None]
  - MYALGIA [None]
  - PROTEIN TOTAL INCREASED [None]
  - VISION BLURRED [None]
  - WHITE BLOOD CELL COUNT DECREASED [None]
